FAERS Safety Report 6693643-6 (Version None)
Quarter: 2010Q2

REPORT INFORMATION
  Report Type: 
  Country: None (occurrence: None)
  Receive Date: 20100420
  Receipt Date: 20100409
  Transmission Date: 20101027
  Serious: Yes (Other)
  Sender: FDA-Public Use
  Company Number: 2010AL002259

PATIENT
  Age: 21 Year
  Sex: Female

DRUGS (1)
  1. CITALOPRAM HYDROBROMIDE [Suspect]
     Indication: DEPRESSION
     Dosage: 10 MG; PO
     Route: 048
     Dates: start: 20100322, end: 20100322

REACTIONS (4)
  - ANOREXIA NERVOSA [None]
  - CHILLS [None]
  - FEELING ABNORMAL [None]
  - MALAISE [None]
